FAERS Safety Report 7780954-6 (Version None)
Quarter: 2011Q3

REPORT INFORMATION
  Report Type: 
  Country: None (occurrence: None)
  Receive Date: 20110927
  Receipt Date: 20110920
  Transmission Date: 20111222
  Serious: Yes (Hospitalization)
  Sender: FDA-Public Use
  Company Number: JP-ASTELLAS-2011JP006480

PATIENT
  Sex: Male
  Weight: 48 kg

DRUGS (13)
  1. TACROLIMUS [Suspect]
     Dosage: 1 MG, UID/QD
     Route: 048
     Dates: start: 20100728, end: 20100801
  2. METHYLPREDNISOLONE [Concomitant]
     Dosage: 4 MG, UNKNOWN/D
     Route: 048
     Dates: start: 20100729, end: 20100801
  3. METHYLPREDNISOLONE [Concomitant]
     Dosage: 4 MG, UNKNOWN/D
     Route: 048
     Dates: start: 20100801
  4. TACROLIMUS [Suspect]
     Indication: CHRONIC GRAFT VERSUS HOST DISEASE
     Dosage: 0.5 MG, UID/QD
     Route: 048
     Dates: start: 20100801, end: 20100916
  5. METHYLPREDNISOLONE [Concomitant]
     Dosage: 4 MG, QOD
     Route: 048
     Dates: end: 20100728
  6. NORVASC [Concomitant]
     Dosage: 2.5 MG, UID/QD
     Route: 048
     Dates: start: 20090706
  7. ZOVIRAX [Concomitant]
     Dosage: 200 MG, UID/QD
     Route: 048
     Dates: start: 20081114
  8. ITRACONAZOLE [Concomitant]
     Dosage: 150 MG, UID/QD
     Route: 048
     Dates: start: 20081201
  9. LANSOPRAZOLE [Concomitant]
     Dosage: 15 MG, UID/QD
     Route: 048
     Dates: start: 20081101
  10. URSO 250 [Concomitant]
     Dosage: 200 MG, TID
     Route: 048
     Dates: start: 20081101
  11. METHYLPREDNISOLONE [Concomitant]
     Dosage: 4 MG, QOD
     Route: 048
     Dates: start: 20100801, end: 20100801
  12. PROGRAF [Suspect]
     Indication: CHRONIC GRAFT VERSUS HOST DISEASE
     Dosage: 0.5 MG, BID
     Route: 048
     Dates: start: 20081101, end: 20100727
  13. MILLIS [Concomitant]
     Dosage: 5 MG, UID/QD
     Route: 062
     Dates: start: 20081114

REACTIONS (1)
  - NEPHROTIC SYNDROME [None]
